FAERS Safety Report 5156887-0 (Version None)
Quarter: 2006Q3

REPORT INFORMATION
  Report Type: 
  Country: None (occurrence: None)
  Receive Date: 20060918
  Receipt Date: 20060606
  Transmission Date: 20061208
  Serious: Yes (Hospitalization)
  Sender: FDA-Public Use
  Company Number: US-JNJFOC-20060601549

PATIENT
  Age: 23 Year
  Sex: Female
  Weight: 70.3075 kg

DRUGS (4)
  1. TOPAMAX [Suspect]
     Indication: MIGRAINE PROPHYLAXIS
     Dosage: 25 MG, IN 1 DAY ORAL ; 25 MG, IN 1 DAY ORAL
     Route: 048
     Dates: start: 20060511
  2. TOPAMAX [Suspect]
     Indication: MIGRAINE PROPHYLAXIS
     Dosage: 25 MG, IN 1 DAY ORAL ; 25 MG, IN 1 DAY ORAL
     Route: 048
     Dates: start: 20060518
  3. LOPRESSOR [Concomitant]
  4. SEASONALE (EUGYNON) [Concomitant]

REACTIONS (1)
  - ANGLE CLOSURE GLAUCOMA [None]
